FAERS Safety Report 16483160 (Version 1)
Quarter: 2019Q2

REPORT INFORMATION
  Report Type: Report from Study
  Country: FR (occurrence: FR)
  Receive Date: 20190627
  Receipt Date: 20190627
  Transmission Date: 20190711
  Serious: Yes (Death, Other)
  Sender: FDA-Public Use
  Company Number: FR-PFIZER INC-2019272623

PATIENT
  Age: 48 Year
  Sex: Female

DRUGS (3)
  1. ATRACURIUM BESILATE [Suspect]
     Active Substance: ATRACURIUM BESYLATE
     Indication: ANAESTHESIA
     Dosage: UNK
  2. THIOPENTAL SODIUM. [Suspect]
     Active Substance: THIOPENTAL SODIUM
     Indication: ANAESTHESIA
     Dosage: UNK
  3. SUXAMETHONIUM [Suspect]
     Active Substance: SUCCINYLCHOLINE
     Indication: ANAESTHESIA
     Dosage: UNK

REACTIONS (2)
  - Anaphylactic reaction [Fatal]
  - Stillbirth [Unknown]
